FAERS Safety Report 25801355 (Version 1)
Quarter: 2025Q3

REPORT INFORMATION
  Report Type: Spontaneous
  Country: EU (occurrence: EU)
  Receive Date: 20250915
  Receipt Date: 20250915
  Transmission Date: 20251021
  Serious: Yes (Other)
  Sender: BOEHRINGER INGELHEIM
  Company Number: EU-SANDOZ-SDZ2025AT065241

PATIENT
  Sex: Male

DRUGS (4)
  1. AFATINIB [Suspect]
     Active Substance: AFATINIB
     Indication: Chordoma
  2. GEMCITABINE [Suspect]
     Active Substance: GEMCITABINE
     Indication: Chordoma
  3. PEMETREXED [Suspect]
     Active Substance: PEMETREXED
     Indication: Chordoma
  4. IMATINIB [Concomitant]
     Active Substance: IMATINIB
     Indication: Chordoma

REACTIONS (5)
  - Chordoma [Unknown]
  - Malignant neoplasm progression [Unknown]
  - Human epidermal growth factor receptor increased [Unknown]
  - Drug intolerance [Unknown]
  - Product use in unapproved indication [Unknown]
